FAERS Safety Report 9197976 (Version 1)
Quarter: 2013Q1

REPORT INFORMATION
  Report Type: Report from Study
  Country: US (occurrence: US)
  Receive Date: 20130328
  Receipt Date: 20130328
  Transmission Date: 20140127
  Serious: Yes (Hospitalization)
  Sender: FDA-Public Use
  Company Number: US-ABBOTT-13P-163-1067413-00

PATIENT
  Age: 18 Year
  Sex: Female

DRUGS (1)
  1. CREON [Suspect]
     Indication: CYSTIC FIBROSIS

REACTIONS (1)
  - Surgery [Unknown]
